FAERS Safety Report 4851940-0 (Version None)
Quarter: 2005Q4

REPORT INFORMATION
  Report Type: 
  Country: None (occurrence: None)
  Receive Date: 20051209
  Receipt Date: 20051125
  Transmission Date: 20060501
  Serious: Yes (Death)
  Sender: FDA-Public Use
  Company Number: PHO 2005-051

PATIENT
  Age: 72 Year
  Sex: Male

DRUGS (1)
  1. PHOTOFRIN [Suspect]
     Indication: OESOPHAGEAL SQUAMOUS CELL CARCINOMA
     Dosage: 2 MG/KG      I.V.
     Route: 042
     Dates: start: 20031203

REACTIONS (4)
  - BRONCHIAL FISTULA [None]
  - GASTROINTESTINAL NECROSIS [None]
  - OESOPHAGEAL PERFORATION [None]
  - OESOPHAGEAL STENOSIS [None]
